FAERS Safety Report 13458540 (Version 1)
Quarter: 2017Q2

REPORT INFORMATION
  Report Type: Spontaneous
  Country: US (occurrence: US)
  Receive Date: 20170419
  Receipt Date: 20170419
  Transmission Date: 20170830
  Serious: No
  Sender: FDA-Public Use
  Company Number: US-BAYER-2017-073412

PATIENT
  Sex: Female

DRUGS (1)
  1. CLIMARA PRO [Suspect]
     Active Substance: ESTRADIOL\LEVONORGESTREL
     Dosage: 0.045/0.015MG
     Route: 062
     Dates: start: 201701

REACTIONS (5)
  - Product shape issue [None]
  - Product adhesion issue [None]
  - Application site pruritus [None]
  - Application site rash [None]
  - Adverse reaction [None]

NARRATIVE: CASE EVENT DATE: 2017
